FAERS Safety Report 5731481-9 (Version None)
Quarter: 2008Q2

REPORT INFORMATION
  Report Type: 
  Country: None (occurrence: None)
  Receive Date: 20080506
  Receipt Date: 20080506
  Transmission Date: 20081010
  Serious: Yes (Life-Threatening)
  Sender: FDA-Public Use
  Company Number: None

PATIENT
  Age: 59 Year
  Sex: Female
  Weight: 58.9676 kg

DRUGS (2)
  1. AVELOX [Suspect]
     Indication: SINUSITIS
     Dosage: 1 3 X PER DAY PO
     Route: 048
     Dates: start: 20080312, end: 20080327
  2. AUGMENTIN [Suspect]
     Indication: SINUSITIS
     Dosage: 1 3 X PER DAY PO
     Route: 048
     Dates: start: 20080328, end: 20080402

REACTIONS (13)
  - ABDOMINAL DISTENSION [None]
  - ABDOMINAL PAIN UPPER [None]
  - BLOOD BILIRUBIN INCREASED [None]
  - CHROMATURIA [None]
  - DYSPEPSIA [None]
  - HEPATOMEGALY [None]
  - JAUNDICE [None]
  - LIVER FUNCTION TEST ABNORMAL [None]
  - LIVER INJURY [None]
  - NAUSEA [None]
  - PAIN [None]
  - PERITONEAL EFFUSION [None]
  - WEIGHT DECREASED [None]
